FAERS Safety Report 6515901-8 (Version None)
Quarter: 2009Q4

REPORT INFORMATION
  Report Type: 
  Country: None (occurrence: None)
  Receive Date: 20091223
  Receipt Date: 20091218
  Transmission Date: 20100525
  Serious: Yes (Hospitalization)
  Sender: FDA-Public Use
  Company Number: Z0002691A

PATIENT
  Age: 72 Year
  Sex: Male

DRUGS (3)
  1. OFATUMUMAB [Suspect]
     Route: 042
     Dates: start: 20091029
  2. AVODART [Concomitant]
     Dosage: .5MG PER DAY
     Route: 048
     Dates: start: 20070411
  3. FLOMAX [Concomitant]
     Dosage: .4MG PER DAY
     Route: 048
     Dates: start: 20070411

REACTIONS (1)
  - RENAL FAILURE ACUTE [None]
